FAERS Safety Report 18703257 (Version 5)
Quarter: 2021Q2

REPORT INFORMATION
  Report Type: Spontaneous
  Country: US (occurrence: US)
  Receive Date: 20210105
  Receipt Date: 20210426
  Transmission Date: 20210717
  Serious: Yes (Other)
  Sender: FDA-Public Use
  Company Number: US-PFIZER INC-2021001957

PATIENT
  Age: 69 Year
  Sex: Male

DRUGS (2)
  1. INLYTA [Suspect]
     Active Substance: AXITINIB
     Indication: NEOPLASM MALIGNANT
     Dosage: 1 MG, CYCLIC ( MEDICATION ONE WEEK ON AND TWO WEEKS OFF)
  2. INLYTA [Suspect]
     Active Substance: AXITINIB
     Dosage: 3 MG, CYCLIC (3 TABS EVERY 12 HOUR ONE WEEK ON, TWO WEEKS OFF)

REACTIONS (13)
  - Diarrhoea [Recovering/Resolving]
  - Lethargy [Recovering/Resolving]
  - Blood glucose increased [Recovering/Resolving]
  - Asthenia [Unknown]
  - Product use issue [Unknown]
  - Blood pressure increased [Recovering/Resolving]
  - Off label use [Unknown]
  - Hypersomnia [Unknown]
  - Dyspnoea [Unknown]
  - Fatigue [Recovering/Resolving]
  - Dysphonia [Unknown]
  - Pain in extremity [Unknown]
  - Discomfort [Unknown]
